FAERS Safety Report 18382108 (Version 1)
Quarter: 2020Q4

REPORT INFORMATION
  Report Type: Spontaneous
  Country: US (occurrence: US)
  Receive Date: 20201013
  Receipt Date: 20201013
  Transmission Date: 20210114
  Serious: Yes (Hospitalization)
  Sender: FDA-Public Use
  Company Number: None

PATIENT
  Age: 52 Year
  Sex: Male
  Weight: 97 kg

DRUGS (1)
  1. SULFAMETHOXAZOLE/TRIMETHOPRIM (SULFAMETHOXAZOLE 800MG/TRIMETHOPRIM 160 MG TAB) [Suspect]
     Active Substance: SULFAMETHOXAZOLE\TRIMETHOPRIM
     Indication: GASTROENTERITIS STAPHYLOCOCCAL
     Route: 048
     Dates: start: 20200808, end: 20200811

REACTIONS (5)
  - Therapy cessation [None]
  - Acute kidney injury [None]
  - Dizziness [None]
  - Hypoaesthesia [None]
  - Hyperkalaemia [None]

NARRATIVE: CASE EVENT DATE: 20200811
